FAERS Safety Report 9302910 (Version 1)
Quarter: 2013Q2

REPORT INFORMATION
  Report Type: Spontaneous
  Country: FR (occurrence: FR)
  Receive Date: 20130522
  Receipt Date: 20130522
  Transmission Date: 20140414
  Serious: Yes (Other)
  Sender: FDA-Public Use
  Company Number: FR-JNJFOC-20130512189

PATIENT
  Age: 45 Year
  Sex: Female

DRUGS (3)
  1. REMICADE [Suspect]
     Indication: RHEUMATIC DISORDER
     Route: 042
     Dates: start: 2009
  2. REMICADE [Suspect]
     Indication: CROHN^S DISEASE
     Route: 042
     Dates: start: 2009
  3. METOJECT [Concomitant]
     Indication: RHEUMATIC DISORDER
     Route: 065
     Dates: start: 2009

REACTIONS (2)
  - Malignant melanoma in situ [Unknown]
  - Malignant melanoma of sites other than skin [Unknown]
